FAERS Safety Report 7121328-0 (Version None)
Quarter: 2010Q4

REPORT INFORMATION
  Report Type: 
  Country: None (occurrence: None)
  Receive Date: 20101119
  Receipt Date: 20101119
  Transmission Date: 20110411
  Serious: Yes (Other)
  Sender: FDA-Public Use
  Company Number: None

PATIENT
  Age: 53 Year
  Sex: Male
  Weight: 82.5547 kg

DRUGS (2)
  1. OXYCONTIN [Suspect]
     Indication: FIBROUS DYSPLASIA OF BONE
     Dosage: 1 TABLET 4X DAILY PO
     Route: 048
     Dates: start: 20100924, end: 20101117
  2. OXYCONTIN [Suspect]
     Indication: PAIN
     Dosage: 1 TABLET 4X DAILY PO
     Route: 048
     Dates: start: 20100924, end: 20101117

REACTIONS (7)
  - DRUG EFFECT DECREASED [None]
  - EUPHORIC MOOD [None]
  - IRRITABILITY [None]
  - NAUSEA [None]
  - PAIN [None]
  - PRODUCT FORMULATION ISSUE [None]
  - SOMNOLENCE [None]
